FAERS Safety Report 5956474-8 (Version None)
Quarter: 2008Q4

REPORT INFORMATION
  Report Type: 
  Country: None (occurrence: None)
  Receive Date: 20081118
  Receipt Date: 20081114
  Transmission Date: 20090506
  Serious: Yes (Hospitalization, Other)
  Sender: FDA-Public Use
  Company Number: TW-BRISTOL-MYERS SQUIBB COMPANY-13716139

PATIENT
  Age: 72 Year
  Sex: Male
  Weight: 63 kg

DRUGS (10)
  1. CISPLATIN [Suspect]
     Indication: NON-SMALL CELL LUNG CANCER
     Dosage: 100MG(75MG/M2 ON DAY1 OF 21DAY CYCLE)-27DEC06-14FEB2007, TOTAL DAILY DOSE -100MG
     Route: 042
     Dates: start: 20070215, end: 20070215
  2. GEMCITABINE HCL [Suspect]
     Indication: NON-SMALL CELL LUNG CANCER
     Dosage: 2200MG(1250MG/M2-DAY1+8 OF 21DAYCYC)FRM27DEC06-14FEB07/937.5MG/M2-22FEB07/2200MG-TOTALDAILY DOSE
     Route: 042
     Dates: start: 20070222, end: 20070222
  3. PF-3512676 [Suspect]
     Indication: NON-SMALL CELL LUNG CANCER
     Dosage: TOTAL DAILY DOSE - 13.5 MG(0.2 MG/KG ON DAY 8+15 OF 21DAY CYCLE)FRM 4JAN07
     Route: 058
     Dates: start: 20070222, end: 20070222
  4. GRANISETRON [Concomitant]
     Route: 042
     Dates: start: 20070125, end: 20070215
  5. GRANISETRON [Concomitant]
     Route: 048
     Dates: start: 20061228, end: 20070219
  6. DEXAMETHASONE TAB [Concomitant]
     Route: 048
     Dates: start: 20061228, end: 20070219
  7. FUROSEMIDE [Concomitant]
     Route: 042
     Dates: start: 20061227, end: 20070215
  8. BETAMETHASONE [Concomitant]
     Route: 042
     Dates: start: 20061227, end: 20070215
  9. MEGESTROL ACETATE [Concomitant]
     Route: 048
     Dates: start: 20070104, end: 20070227
  10. PROCATEROL HCL [Concomitant]
     Route: 048
     Dates: start: 20070104, end: 20070227

REACTIONS (4)
  - CONVULSION [None]
  - HYPERGLYCAEMIA [None]
  - MALIGNANT NEOPLASM PROGRESSION [None]
  - RENAL FAILURE ACUTE [None]
